FAERS Safety Report 24431897 (Version 1)
Quarter: 2024Q4

REPORT INFORMATION
  Report Type: Spontaneous
  Country: AU (occurrence: AU)
  Receive Date: 20241014
  Receipt Date: 20241014
  Transmission Date: 20250115
  Serious: Yes (Hospitalization)
  Sender: TASMAN PHARMA
  Company Number: AU-TASMAN PHARMA, INC.-2024TSM00235

PATIENT
  Age: 56 Year
  Sex: Female

DRUGS (9)
  1. CLOZAPINE [Suspect]
     Active Substance: CLOZAPINE
     Dosage: 600 MG (100 MG MANE AND 500 MG NOCTE)
     Dates: start: 20121130, end: 20190314
  2. LITHIUM CARBONATE [Concomitant]
     Active Substance: LITHIUM CARBONATE
     Dosage: 750 MG, 1X/DAY
  3. AMISULPRIDE [Concomitant]
     Active Substance: AMISULPRIDE
     Dosage: 200 MG, 1X/DAY NOCTE
     Dates: end: 201903
  4. AMISULPRIDE [Concomitant]
     Active Substance: AMISULPRIDE
     Dosage: 200 MG, 2X/DAY
     Dates: start: 201903
  5. METOPROLOL SUCCINATE [Concomitant]
     Active Substance: METOPROLOL SUCCINATE
     Dosage: 47.5 MG, 1X/DAY
     Route: 048
  6. CILAZAPRIL ANHYDROUS [Concomitant]
     Active Substance: CILAZAPRIL ANHYDROUS
     Dosage: 5 MG, 1X/DAY MANE
  7. CHOLECALCIFEROL [Concomitant]
     Active Substance: CHOLECALCIFEROL
     Dosage: 1.25 MG, 1X/MONTH
  8. HYDROCORTISONE BUTYRATE [Concomitant]
     Active Substance: HYDROCORTISONE BUTYRATE
     Dosage: UNK, AS NEEDED
  9. LACTULOSE [Concomitant]
     Active Substance: LACTULOSE
     Dosage: 10 ML-20 ML, AS NEEDED (MINIMUM DOSE INTERVAL 8 HOURS)
     Route: 048

REACTIONS (9)
  - Neurological symptom [Recovered/Resolved]
  - Balance disorder [Recovered/Resolved]
  - Rhabdomyolysis [Recovering/Resolving]
  - Pyrexia [Recovered/Resolved]
  - Musculoskeletal disorder [Recovered/Resolved]
  - Cough [Recovered/Resolved]
  - Fall [Recovered/Resolved]
  - Headache [Recovered/Resolved]
  - Dizziness [Recovered/Resolved]

NARRATIVE: CASE EVENT DATE: 20190301
